FAERS Safety Report 9658608 (Version 2)
Quarter: 2013Q4

REPORT INFORMATION
  Report Type: Spontaneous
  Country: US (occurrence: US)
  Receive Date: 20131030
  Receipt Date: 20131030
  Transmission Date: 20140711
  Serious: No
  Sender: FDA-Public Use
  Company Number: US-PURDUE-USA-2010-0056749

PATIENT
  Sex: Male
  Weight: 96.15 kg

DRUGS (4)
  1. OXYCONTIN (NDA 22-272) [Suspect]
     Indication: PAIN
     Dosage: 40 MG, UNK
     Dates: end: 20110927
  2. OXYCONTIN (NDA 22-272) [Suspect]
     Dosage: 60 MG, BID
  3. PERCOCET                           /00446701/ [Concomitant]
     Indication: PRODUCT USED FOR UNKNOWN INDICATION
  4. TYLENOL W/CODEINE NO. 3 [Concomitant]
     Indication: PRODUCT USED FOR UNKNOWN INDICATION

REACTIONS (2)
  - Pain [Unknown]
  - Drug ineffective [Unknown]
